FAERS Safety Report 4400664-2 (Version None)
Quarter: 2004Q3

REPORT INFORMATION
  Report Type: 
  Country: None (occurrence: None)
  Receive Date: 20040719
  Receipt Date: 20040707
  Transmission Date: 20050211
  Serious: Yes (Other)
  Sender: FDA-Public Use
  Company Number: JP-BRISTOL-MYERS SQUIBB COMPANY-12639712

PATIENT

DRUGS (4)
  1. GATIFLO TABS 100 MG [Suspect]
     Indication: PNEUMONIA
     Route: 048
  2. CLARITH [Concomitant]
     Indication: PNEUMONIA
  3. MUCODYNE [Concomitant]
     Route: 048
  4. CHINESE HERBS [Concomitant]
     Route: 048

REACTIONS (2)
  - AGRANULOCYTOSIS [None]
  - HEPATIC FUNCTION ABNORMAL [None]
